FAERS Safety Report 18936017 (Version 1)
Quarter: 2021Q1

REPORT INFORMATION
  Report Type: Spontaneous
  Country: US (occurrence: US)
  Receive Date: 20210224
  Receipt Date: 20210224
  Transmission Date: 20210420
  Serious: Yes (Other)
  Sender: FDA-Public Use
  Company Number: US-ORGANON-2102USA000636

PATIENT
  Age: 71 Year
  Sex: Female

DRUGS (49)
  1. PREDNISONE. [Suspect]
     Active Substance: PREDNISONE
     Dosage: 20 MG QD 3D
  2. FLUTICASONE. [Suspect]
     Active Substance: FLUTICASONE
     Dosage: 220 MCG ? 1?2 PUFFS BID
  3. TRIAMCINOLONE [Suspect]
     Active Substance: TRIAMCINOLONE
     Dosage: 75 MCG 3 PUFFS QD
  4. PREDNISONE. [Suspect]
     Active Substance: PREDNISONE
     Dosage: 40 MG, 5 DAYS
  5. PREDNISONE. [Suspect]
     Active Substance: PREDNISONE
     Dosage: 10 MG 5 D
  6. PREDNISONE. [Suspect]
     Active Substance: PREDNISONE
     Dosage: 20 MG 5 D
  7. PREDNISONE. [Suspect]
     Active Substance: PREDNISONE
     Dosage: 60 MG 3D
  8. PREDNISONE. [Suspect]
     Active Substance: PREDNISONE
     Indication: ASTHMA
     Dosage: 20 MG TID FOR 4 DAYS
  9. PREDNISONE. [Suspect]
     Active Substance: PREDNISONE
     Dosage: 10 MG QD 3D
  10. PREDNISONE. [Suspect]
     Active Substance: PREDNISONE
     Dosage: 20 MILLIGRAM, QD
  11. METHYLPREDNISOLONE. [Suspect]
     Active Substance: METHYLPREDNISOLONE
     Dosage: 40 MG X 1
  12. BUDESONIDE;FORMOTEROL FUMARATE [Suspect]
     Active Substance: BUDESONIDE\FORMOTEROL FUMARATE
     Dosage: 80/4.5, 2 PUFFS BID
  13. FLUTICASONE. [Suspect]
     Active Substance: FLUTICASONE
     Dosage: 220 MCG, 2 PUFFS BID PRN
  14. FLUTICASONE. [Suspect]
     Active Substance: FLUTICASONE
     Dosage: 50 MCG, 2 SPRAY EACH NOSTRIL BID
     Route: 045
  15. BETAMETHASONE DIPROPIONATE;CLOTRIMAZOLE [Suspect]
     Active Substance: BETAMETHASONE DIPROPIONATE\CLOTRIMAZOLE
     Dosage: 1?0.05% BID
  16. DULERA [Suspect]
     Active Substance: FORMOTEROL FUMARATE DIHYDRATE\MOMETASONE FUROATE
     Dosage: 2 PUFFS BID
  17. PREDNISONE. [Suspect]
     Active Substance: PREDNISONE
     Dosage: 40 MG QD 3?5 D
  18. PREDNISONE. [Suspect]
     Active Substance: PREDNISONE
     Dosage: 40 MG X 2 DAY
  19. PREDNISONE. [Suspect]
     Active Substance: PREDNISONE
     Dosage: 1 TAB BID 3?5 D
  20. PREDNISONE. [Suspect]
     Active Substance: PREDNISONE
     Dosage: 40 MG 5 D
  21. PREDNISONE. [Suspect]
     Active Substance: PREDNISONE
     Dosage: DOSE UNKNOWN, ONE COURSE HYDROCORTISONE EAR DROPS
  22. PREDNISONE. [Suspect]
     Active Substance: PREDNISONE
     Dosage: 40 MG QD; UNKNOWN DURATION
  23. PREDNISONE. [Suspect]
     Active Substance: PREDNISONE
     Dosage: UP TO 80 MG DAILY MAX DOSE; TAPER DOWN WITHIN 1E WEEK THE FIRST 2 COURSES
  24. METHYLPREDNISOLONE. [Suspect]
     Active Substance: METHYLPREDNISOLONE
     Dosage: 40 MG X 4
  25. PREDNISONE. [Suspect]
     Active Substance: PREDNISONE
     Dosage: 50 MILLIGRAM, QD
  26. PREDNISONE. [Suspect]
     Active Substance: PREDNISONE
     Dosage: 40 MG QD 6 D
  27. PREDNISONE. [Suspect]
     Active Substance: PREDNISONE
     Dosage: 60 MG QD 3 D
  28. PREDNISONE. [Suspect]
     Active Substance: PREDNISONE
     Dosage: 20 MG 5D
  29. HYDROCORTISONE. [Suspect]
     Active Substance: HYDROCORTISONE
     Dosage: UNK
  30. METHYLPREDNISOLONE. [Suspect]
     Active Substance: METHYLPREDNISOLONE
     Dosage: 40 MILLIGRAM
  31. METHYLPREDNISOLONE. [Suspect]
     Active Substance: METHYLPREDNISOLONE
     Dosage: 60 MG X 1
  32. FLUTICASONE PROPIONATE;SALMETEROL XINAFOATE [Suspect]
     Active Substance: FLUTICASONE PROPIONATE\SALMETEROL XINAFOATE
     Dosage: 230/21, 2 PUFFS BID
  33. PREDNISONE. [Suspect]
     Active Substance: PREDNISONE
     Dosage: 15 MILLIGRAM
  34. PREDNISONE. [Suspect]
     Active Substance: PREDNISONE
     Dosage: 20 MG BID 5 D
  35. PREDNISONE. [Suspect]
     Active Substance: PREDNISONE
     Dosage: 20 MG QD 7 D
  36. TRIAMCINOLONE [Suspect]
     Active Substance: TRIAMCINOLONE
     Dosage: 55 MCG/ACTUATION 1?2 SPRAYS EACH NOSTRIL QD
     Route: 045
  37. PREDNISONE. [Suspect]
     Active Substance: PREDNISONE
     Dosage: 20 MG BID 3 D
  38. PREDNISONE. [Suspect]
     Active Substance: PREDNISONE
     Dosage: 20 MG 5 DAYS
  39. PREDNISONE. [Suspect]
     Active Substance: PREDNISONE
     Dosage: 40 MG QD 3?5 D
  40. METHYLPREDNISOLONE. [Suspect]
     Active Substance: METHYLPREDNISOLONE
     Dosage: 20 MG
  41. FLUTICASONE PROPIONATE;SALMETEROL XINAFOATE [Suspect]
     Active Substance: FLUTICASONE PROPIONATE\SALMETEROL XINAFOATE
     Dosage: 250/50, 1 PUFF BID
  42. FLUTICASONE PROPIONATE;SALMETEROL XINAFOATE [Suspect]
     Active Substance: FLUTICASONE PROPIONATE\SALMETEROL XINAFOATE
     Dosage: 500/50, 1 PUFF BID
  43. PREDNISONE. [Suspect]
     Active Substance: PREDNISONE
     Dosage: PREDNISONE AT HAND, OCCASIONAL DOSES
  44. PREDNISONE. [Suspect]
     Active Substance: PREDNISONE
     Dosage: 40 MG 5 D
  45. PREDNISONE. [Suspect]
     Active Substance: PREDNISONE
     Dosage: UP TO 80 MG DAILY MAX DOSE; THE LAST COURSE TAPER DOWN WITHIN 3 WEEKS
  46. HYDROCORTISONE. [Suspect]
     Active Substance: HYDROCORTISONE
     Dosage: ONE COURSE
  47. METHYLPREDNISOLONE. [Suspect]
     Active Substance: METHYLPREDNISOLONE
     Dosage: 100 MG X 1
  48. FLUTICASONE PROPIONATE;SALMETEROL XINAFOATE [Suspect]
     Active Substance: FLUTICASONE PROPIONATE\SALMETEROL XINAFOATE
     Dosage: 250/50, 1 PUFF BID
  49. FLUTICASONE PROPIONATE;SALMETEROL XINAFOATE [Suspect]
     Active Substance: FLUTICASONE PROPIONATE\SALMETEROL XINAFOATE
     Dosage: 200/5, 2 PUFFS BID

REACTIONS (1)
  - Adrenal insufficiency [Not Recovered/Not Resolved]
